FAERS Safety Report 4503789-6 (Version None)
Quarter: 2004Q4

REPORT INFORMATION
  Report Type: 
  Country: None (occurrence: None)
  Receive Date: 20041115
  Receipt Date: 20041029
  Transmission Date: 20050328
  Serious: Yes (Hospitalization)
  Sender: FDA-Public Use
  Company Number: 2004CG02203

PATIENT
  Age: 33 Year
  Sex: Female

DRUGS (9)
  1. MARCAINE [Suspect]
     Indication: SPINAL ANAESTHESIA
     Dosage: 10 MG ONCE IT
     Route: 037
     Dates: start: 20040811, end: 20040811
  2. DROLEPTAN [Suspect]
     Dosage: 1 DF ONCE IV
     Route: 042
     Dates: start: 20040811, end: 20040811
  3. MORPHINE HYDROCHLORIDE [Concomitant]
     Dosage: 100 UG ONCE IT
     Route: 037
     Dates: start: 20040811, end: 20040811
  4. SYNTOCINON [Suspect]
     Dosage: 6 ML ONCE IV
     Route: 042
     Dates: start: 20040811, end: 20040811
  5. ZOPHREN [Suspect]
     Dosage: 1 DF ONCE IV
     Route: 042
     Dates: start: 20040811, end: 20040811
  6. EPHEDRINE HCL 1PC SOL [Suspect]
     Dosage: 2 DF ONCE IV
     Route: 042
     Dates: start: 20040811, end: 20040811
  7. LEXOMIL [Concomitant]
  8. SEROTONIN RELEASE INHIBITOR [Concomitant]
  9. LACTATED RINGER'S [Concomitant]

REACTIONS (7)
  - ANAESTHETIC COMPLICATION [None]
  - CONFUSIONAL STATE [None]
  - DRUG SCREEN POSITIVE [None]
  - HYPERHIDROSIS [None]
  - HYPOTHERMIA [None]
  - LABORATORY TEST INTERFERENCE [None]
  - THERAPEUTIC RESPONSE DELAYED [None]
